FAERS Safety Report 11451303 (Version 1)
Quarter: 2015Q3

REPORT INFORMATION
  Report Type: Spontaneous
  Country: US (occurrence: US)
  Receive Date: 20150903
  Receipt Date: 20150903
  Transmission Date: 20151125
  Serious: No
  Sender: FDA-Public Use
  Company Number: US-ROCHE-1052741

PATIENT
  Sex: Female

DRUGS (3)
  1. PEGASYS [Suspect]
     Active Substance: PEGINTERFERON ALFA-2A
     Indication: HEPATITIS C
     Dosage: 12 WEEKS LENGTH OF TREATMENT
     Route: 058
     Dates: start: 20120319
  2. TELAPREVIR [Suspect]
     Active Substance: TELAPREVIR
     Indication: HEPATITIS C
     Dosage: 12 WEEKS LENGTH OF TREATMENT
     Route: 065
     Dates: start: 20120319
  3. RIBAVIRIN. [Suspect]
     Active Substance: RIBAVIRIN
     Indication: HEPATITIS C
     Dosage: DIVIDED DOSES,12 WEEKS LENGTH OF TREATMENT
     Route: 048
     Dates: start: 20120319

REACTIONS (5)
  - Balance disorder [Unknown]
  - Asthenia [Unknown]
  - No therapeutic response [Unknown]
  - Confusional state [Unknown]
  - Somnolence [Unknown]
